FAERS Safety Report 23327813 (Version 2)
Quarter: 2024Q1

REPORT INFORMATION
  Report Type: Report from Study
  Country: US (occurrence: US)
  Receive Date: 20231221
  Receipt Date: 20240322
  Transmission Date: 20240409
  Serious: No
  Sender: FDA-Public Use
  Company Number: US-KYOWAKIRIN-2023KK020385

PATIENT

DRUGS (16)
  1. CRYSVITA [Suspect]
     Active Substance: BUROSUMAB-TWZA
     Indication: Hereditary hypophosphataemic rickets
     Dosage: 75 MG, 1X/2 WEEKS
     Route: 058
     Dates: start: 20190109
  2. CRYSVITA [Suspect]
     Active Substance: BUROSUMAB-TWZA
     Dosage: 75 MG, 1X/2 WEEKS
     Route: 058
     Dates: start: 20190822
  3. CRYSVITA [Suspect]
     Active Substance: BUROSUMAB-TWZA
     Dosage: 75 MG, 1X/2 WEEKS
     Route: 058
     Dates: start: 20191028
  4. CRYSVITA [Suspect]
     Active Substance: BUROSUMAB-TWZA
     Dosage: 75 MG, 1X/2 WEEKS
     Route: 058
     Dates: start: 20231016
  5. CRYSVITA [Suspect]
     Active Substance: BUROSUMAB-TWZA
     Dosage: 75 MG, 1X/2 WEEKS
     Route: 058
     Dates: start: 20231127
  6. CRYSVITA [Suspect]
     Active Substance: BUROSUMAB-TWZA
     Dosage: 75 MG, 1X/2 WEEKS
     Route: 058
     Dates: start: 20231218
  7. CRYSVITA [Suspect]
     Active Substance: BUROSUMAB-TWZA
     Dosage: 75 MG, 1X/2 WEEKS
     Route: 058
     Dates: start: 20240111
  8. CRYSVITA [Suspect]
     Active Substance: BUROSUMAB-TWZA
     Indication: Hereditary hypophosphataemic rickets
     Dosage: 75 MG, 1X/2 WEEKS
     Route: 058
     Dates: start: 20190109
  9. CRYSVITA [Suspect]
     Active Substance: BUROSUMAB-TWZA
     Dosage: 75 MG, 1X/2 WEEKS
     Route: 058
     Dates: start: 20190822
  10. CRYSVITA [Suspect]
     Active Substance: BUROSUMAB-TWZA
     Dosage: 75 MG, 1X/2 WEEKS
     Route: 058
     Dates: start: 20191028
  11. CRYSVITA [Suspect]
     Active Substance: BUROSUMAB-TWZA
     Dosage: 75 MG, 1X/2 WEEKS
     Route: 058
     Dates: start: 20231016
  12. CRYSVITA [Suspect]
     Active Substance: BUROSUMAB-TWZA
     Dosage: 75 MG, 1X/2 WEEKS
     Route: 058
     Dates: start: 20231127
  13. CRYSVITA [Suspect]
     Active Substance: BUROSUMAB-TWZA
     Dosage: 75 MG, 1X/2 WEEKS
     Route: 058
     Dates: start: 20231218
  14. CRYSVITA [Suspect]
     Active Substance: BUROSUMAB-TWZA
     Dosage: 75 MG, 1X/2 WEEKS
     Route: 058
     Dates: start: 20240111
  15. CRYSVITA [Concomitant]
     Active Substance: BUROSUMAB-TWZA
     Indication: Product used for unknown indication
     Dosage: UNK
     Route: 065
  16. VITAMIN D NOS [Concomitant]
     Active Substance: VITAMIN D NOS
     Indication: Product used for unknown indication
     Dosage: UNK
     Route: 065

REACTIONS (3)
  - Blood phosphorus decreased [Not Recovered/Not Resolved]
  - Blood 25-hydroxycholecalciferol decreased [Unknown]
  - Inappropriate schedule of product administration [Recovered/Resolved]

NARRATIVE: CASE EVENT DATE: 20231025
